FAERS Safety Report 7032758-X (Version None)
Quarter: 2010Q4

REPORT INFORMATION
  Report Type: 
  Country: None (occurrence: None)
  Receive Date: 20101007
  Receipt Date: 20100930
  Transmission Date: 20110411
  Serious: Yes (Hospitalization, Other)
  Sender: FDA-Public Use
  Company Number: US-PFIZER INC-2010092533

PATIENT
  Sex: Female

DRUGS (11)
  1. CHANTIX [Suspect]
     Indication: SMOKING CESSATION THERAPY
     Dosage: 0.5/1MG
     Route: 048
     Dates: start: 20070301, end: 20070501
  2. CHANTIX [Suspect]
     Dosage: 0.5/1MG
     Dates: start: 20080401, end: 20080701
  3. MONTELUKAST [Concomitant]
     Indication: ASTHMA
     Dosage: UNK
     Dates: start: 20020101, end: 20090101
  4. MONTELUKAST [Concomitant]
     Indication: HYPERSENSITIVITY
  5. ASTELIN [Concomitant]
     Indication: ASTHMA
     Dosage: UNK
     Dates: start: 20020101, end: 20090101
  6. ASTELIN [Concomitant]
     Indication: HYPERSENSITIVITY
  7. LEXAPRO [Concomitant]
     Indication: DEPRESSION
     Dosage: UNK
     Dates: start: 20040101
  8. LEVAQUIN [Concomitant]
     Indication: INFECTION
     Dosage: UNK
     Dates: start: 20050101, end: 20100101
  9. AMOXICILLIN [Concomitant]
     Indication: INFECTION
     Dosage: UNK
     Dates: start: 20050101, end: 20100101
  10. FLEXERIL [Concomitant]
     Indication: MYALGIA
     Dosage: UNK
     Dates: start: 20060101, end: 20090101
  11. METHYLPREDNISOLONE [Concomitant]
     Indication: INFLAMMATION
     Dosage: UNK
     Dates: start: 20060101, end: 20090101

REACTIONS (6)
  - ABNORMAL BEHAVIOUR [None]
  - AGGRESSION [None]
  - ANXIETY [None]
  - DEPRESSION [None]
  - INSOMNIA [None]
  - SUICIDAL IDEATION [None]
